FAERS Safety Report 7654110-6 (Version None)
Quarter: 2011Q3

REPORT INFORMATION
  Report Type: 
  Country: None (occurrence: None)
  Receive Date: 20110803
  Receipt Date: 20110727
  Transmission Date: 20111222
  Serious: Yes (Death)
  Sender: FDA-Public Use
  Company Number: PHHY2011US68662

PATIENT
  Age: 55 Year
  Sex: Male
  Weight: 26 kg

DRUGS (1)
  1. AMTURNIDE [Suspect]
     Dosage: UNK UKN, QD
     Route: 048
     Dates: start: 20110721

REACTIONS (1)
  - DEATH [None]
